FAERS Safety Report 24298271 (Version 1)
Quarter: 2024Q3

REPORT INFORMATION
  Report Type: Other
  Country: GB (occurrence: GB)
  Receive Date: 20240909
  Receipt Date: 20240909
  Transmission Date: 20241016
  Serious: Yes (Other)
  Sender: GLENMARK
  Company Number: None

PATIENT

DRUGS (1)
  1. ROSUVASTATIN CALCIUM [Suspect]
     Active Substance: ROSUVASTATIN CALCIUM
     Indication: Blood cholesterol increased
     Dosage: UNK; 40
     Route: 065
     Dates: end: 20240820

REACTIONS (6)
  - Eczema [Recovering/Resolving]
  - Blister [Recovering/Resolving]
  - Dizziness [Recovered/Resolved]
  - Headache [Recovered/Resolved]
  - Neck pain [Unknown]
  - Pruritus [Recovering/Resolving]

NARRATIVE: CASE EVENT DATE: 20240501
